FAERS Safety Report 19051267 (Version 1)
Quarter: 2021Q1

REPORT INFORMATION
  Report Type: Spontaneous
  Country: US (occurrence: US)
  Receive Date: 20210324
  Receipt Date: 20210324
  Transmission Date: 20210420
  Serious: Yes (Hospitalization)
  Sender: FDA-Public Use
  Company Number: None

PATIENT
  Age: 82 Year
  Sex: Female

DRUGS (1)
  1. ERTAPENEM. [Suspect]
     Active Substance: ERTAPENEM SODIUM
     Indication: BACTERIAL INFECTION
     Route: 042
     Dates: start: 20210313, end: 20210317

REACTIONS (3)
  - Apnoea [None]
  - Oxygen saturation decreased [None]
  - Seizure like phenomena [None]

NARRATIVE: CASE EVENT DATE: 20210317
